FAERS Safety Report 8530236-X (Version None)
Quarter: 2012Q3

REPORT INFORMATION
  Report Type: 
  Country: None (occurrence: None)
  Receive Date: 20120710
  Receipt Date: 20120628
  Transmission Date: 20120928
  Serious: Yes (Hospitalization, Other)
  Sender: FDA-Public Use
  Company Number: 2012AT000376

PATIENT
  Age: 65 Year
  Sex: Female

DRUGS (1)
  1. ALPROSTADIL [Suspect]
     Indication: CORONARY ARTERY DISEASE
     Dosage: 60 UG; QD; IV
     Route: 042
     Dates: start: 20120530, end: 20120622

REACTIONS (1)
  - GRAND MAL CONVULSION [None]
